FAERS Safety Report 16633137 (Version 3)
Quarter: 2019Q3

REPORT INFORMATION
  Report Type: Report from Study
  Country: US (occurrence: US)
  Receive Date: 20190725
  Receipt Date: 20190913
  Transmission Date: 20191004
  Serious: Yes (Hospitalization, Other)
  Sender: FDA-Public Use
  Company Number: PHEH2019US030685

PATIENT
  Age: 58 Year
  Sex: Female

DRUGS (1)
  1. GILENYA [Suspect]
     Active Substance: FINGOLIMOD HYDROCHLORIDE
     Indication: MULTIPLE SCLEROSIS
     Dosage: 0.5 MG, QD
     Route: 048
     Dates: start: 20190502

REACTIONS (8)
  - Confusional state [Unknown]
  - Back pain [Not Recovered/Not Resolved]
  - Insomnia [Not Recovered/Not Resolved]
  - Road traffic accident [Unknown]
  - Hip fracture [Unknown]
  - Lower limb fracture [Unknown]
  - Concomitant disease aggravated [Unknown]
  - Memory impairment [Unknown]

NARRATIVE: CASE EVENT DATE: 20190701
